FAERS Safety Report 9692817 (Version 5)
Quarter: 2014Q1

REPORT INFORMATION
  Report Type: Spontaneous
  Country: FR (occurrence: FR)
  Receive Date: 20131118
  Receipt Date: 20140114
  Transmission Date: 20141002
  Serious: Yes (Life-Threatening, Other)
  Sender: FDA-Public Use
  Company Number: FR-JNJFOC-20131104900

PATIENT
  Age: 63 Year
  Sex: Male
  Weight: 96 kg

DRUGS (5)
  1. STELARA [Suspect]
     Indication: PSORIASIS
     Route: 058
     Dates: start: 20100715, end: 20130620
  2. GARDENAL [Concomitant]
     Indication: EPILEPSY
     Route: 065
  3. METFORMIN [Concomitant]
     Indication: DIABETES MELLITUS
     Route: 065
  4. TRAMADOL [Concomitant]
     Route: 065
  5. TAHOR [Concomitant]
     Indication: DYSLIPIDAEMIA
     Route: 065

REACTIONS (1)
  - Lung cancer metastatic [Unknown]
